FAERS Safety Report 6904948-5 (Version None)
Quarter: 2010Q3

REPORT INFORMATION
  Report Type: 
  Country: None (occurrence: None)
  Receive Date: 20100804
  Receipt Date: 20090805
  Transmission Date: 20110219
  Serious: Yes (Life-Threatening, Hospitalization)
  Sender: FDA-Public Use
  Company Number: US-PFIZER INC-2009229650

PATIENT
  Sex: Male
  Weight: 120.32 kg

DRUGS (2)
  1. LYRICA [Suspect]
     Indication: DIABETIC NEUROPATHY
     Dosage: 150 MG, 2X/DAY
  2. LIPITOR [Concomitant]
     Dosage: UNK

REACTIONS (1)
  - BLOOD CREATINE PHOSPHOKINASE INCREASED [None]
